FAERS Safety Report 10253100 (Version 1)
Quarter: 2014Q2

REPORT INFORMATION
  Report Type: Spontaneous
  Country: US (occurrence: US)
  Receive Date: 20140623
  Receipt Date: 20140623
  Transmission Date: 20141212
  Serious: Yes (Hospitalization, Other)
  Sender: FDA-Public Use
  Company Number: US-BAYER-2014-089890

PATIENT
  Age: 70 Year
  Sex: Female

DRUGS (7)
  1. ACETYLSALICYLIC ACID + PHENYLEPHRINE [Suspect]
     Indication: SINUSITIS
     Dosage: 325+7.8 MG
     Route: 048
  2. ACETYLSALICYLIC ACID + PHENYLEPHRINE [Suspect]
     Indication: NASAL CONGESTION
  3. BRIMONIDINE [Concomitant]
  4. TRAVOPROST [Concomitant]
  5. ENALAPRIL [Concomitant]
  6. VERAPAMIL [Concomitant]
  7. PAROXETINE [Concomitant]

REACTIONS (2)
  - Colitis ischaemic [Recovered/Resolved]
  - Lactic acidosis [Recovered/Resolved]
